FAERS Safety Report 17239773 (Version 1)
Quarter: 2020Q1

REPORT INFORMATION
  Report Type: Report from Study
  Country: None (occurrence: AU)
  Receive Date: 20200106
  Receipt Date: 20200106
  Transmission Date: 20200409
  Serious: Yes (Other)
  Sender: FDA-Public Use
  Company Number: AU-ABBVIE-20K-008-3220531-00

PATIENT
  Age: 72 Year

DRUGS (1)
  1. DUODOPA [Suspect]
     Active Substance: CARBIDOPA\LEVODOPA
     Indication: PARKINSON^S DISEASE
     Dosage: 16 HOURS
     Route: 050
     Dates: start: 20190909

REACTIONS (3)
  - Loss of consciousness [Unknown]
  - Vomiting [Unknown]
  - Cold sweat [Unknown]

NARRATIVE: CASE EVENT DATE: 20200106
